FAERS Safety Report 6211660-7 (Version None)
Quarter: 2009Q2

REPORT INFORMATION
  Report Type: 
  Country: None (occurrence: None)
  Receive Date: 20090602
  Receipt Date: 20090526
  Transmission Date: 20091009
  Serious: Yes (Hospitalization)
  Sender: FDA-Public Use
  Company Number: A0787746A

PATIENT
  Age: 57 Year

DRUGS (3)
  1. LAMICTAL [Suspect]
     Dosage: 100MG PER DAY
     Route: 048
  2. DEPAKOTE [Concomitant]
     Dosage: 1500MG PER DAY
  3. PROVIGIL [Concomitant]

REACTIONS (3)
  - DYSPNOEA [None]
  - HEART RATE DECREASED [None]
  - OXYGEN SATURATION DECREASED [None]
